FAERS Safety Report 6735086-2 (Version None)
Quarter: 2010Q2

REPORT INFORMATION
  Report Type: 
  Country: None (occurrence: None)
  Receive Date: 20100519
  Receipt Date: 20100519
  Transmission Date: 20101027
  Serious: Yes (Other)
  Sender: FDA-Public Use
  Company Number: None

PATIENT
  Age: 60 Year
  Sex: Male
  Weight: 73.4827 kg

DRUGS (1)
  1. BONIVA [Suspect]
     Dosage: BEGINNING OF 2008 TO 4/2010
     Dates: start: 20080101, end: 20100401

REACTIONS (1)
  - OSTEONECROSIS [None]
